FAERS Safety Report 20603057 (Version 2)
Quarter: 2022Q3

REPORT INFORMATION
  Report Type: Spontaneous
  Country: US (occurrence: US)
  Receive Date: 20220316
  Receipt Date: 20220919
  Transmission Date: 20221027
  Serious: No
  Sender: FDA-Public Use
  Company Number: US-SAREPTA THERAPEUTICS INC.-SRP2022-002094

PATIENT
  Age: 15 Year
  Sex: Male

DRUGS (1)
  1. VYONDYS 53 [Suspect]
     Active Substance: GOLODIRSEN
     Indication: Product used for unknown indication
     Dosage: 2250 MILLIGRAM, WEEKLY
     Route: 042
     Dates: end: 20220215

REACTIONS (1)
  - Infusion site pain [Recovering/Resolving]

NARRATIVE: CASE EVENT DATE: 20220222
